FAERS Safety Report 20702065 (Version 1)
Quarter: 2022Q2

REPORT INFORMATION
  Report Type: Spontaneous
  Country: US (occurrence: None)
  Receive Date: 20220411
  Receipt Date: 20220411
  Transmission Date: 20220721
  Serious: Yes (Hospitalization, Other)
  Sender: FDA-Public Use
  Company Number: None

PATIENT
  Age: 53 Year
  Sex: Female
  Weight: 63.45 kg

DRUGS (5)
  1. CAPECITABINE [Suspect]
     Active Substance: CAPECITABINE
     Indication: Breast cancer metastatic
     Dosage: OTHER QUANTITY : 3 TABLET(S);?FREQUENCY : TWICE A DAY;?
     Route: 048
  2. Pepcid was prescribed before 3rd attempt [Concomitant]
  3. GABAPENTIN [Concomitant]
     Active Substance: GABAPENTIN
  4. Loratadine Benydryl (after first reaction) [Concomitant]
  5. Pepcid (after second reaction) [Concomitant]

REACTIONS (6)
  - Dihydropyrimidine dehydrogenase deficiency [None]
  - Abdominal pain [None]
  - Diarrhoea [None]
  - Stomatitis [None]
  - Lip blister [None]
  - Rash [None]

NARRATIVE: CASE EVENT DATE: 20220218
